FAERS Safety Report 7552665-3 (Version None)
Quarter: 2011Q2

REPORT INFORMATION
  Report Type: 
  Country: None (occurrence: None)
  Receive Date: 20110616
  Receipt Date: 20110608
  Transmission Date: 20111010
  Serious: Yes (Hospitalization)
  Sender: FDA-Public Use
  Company Number: NL-TEVA-285131ISR

PATIENT
  Sex: Male
  Weight: 85 kg

DRUGS (9)
  1. PREDNISOLONE [Concomitant]
     Dosage: 7.5 MILLIGRAM;
  2. ATORVASTATIN [Concomitant]
     Dosage: 10 MILLIGRAM;
  3. AZATHIOPRINE [Concomitant]
     Dosage: 50 MILLIGRAM;
  4. SULFAMETHOXAZOLE AND TRIMETHOPRIM [Concomitant]
     Dosage: 80/400MG
  5. INSULIN ASPART [Concomitant]
  6. LEKOVIT CA [Concomitant]
     Dosage: 1 DOSAGE FORMS;
  7. DOXYCYCLINE [Suspect]
     Dosage: 100 MILLIGRAM;
     Dates: start: 20110502, end: 20110505
  8. AZATHIOPRINE [Concomitant]
     Dosage: 25 MILLIGRAM;
  9. PANTOPRAZOLE [Concomitant]
     Dosage: 20 MILLIGRAM;

REACTIONS (3)
  - VOMITING [None]
  - NAUSEA [None]
  - DIPLOPIA [None]
